FAERS Safety Report 12511729 (Version 3)
Quarter: 2020Q2

REPORT INFORMATION
  Report Type: Spontaneous
  Country: US (occurrence: US)
  Receive Date: 20160630
  Receipt Date: 20200622
  Transmission Date: 20200713
  Serious: Yes (Hospitalization)
  Sender: FDA-Public Use
  Company Number: US-JNJFOC-20160523070

PATIENT
  Age: 51 Year
  Sex: Female

DRUGS (4)
  1. XARELTO [Suspect]
     Active Substance: RIVAROXABAN
     Indication: DEEP VEIN THROMBOSIS
     Dosage: 15MG, 20MG
     Route: 048
     Dates: start: 20140404
  2. XARELTO [Suspect]
     Active Substance: RIVAROXABAN
     Route: 048
     Dates: end: 201410
  3. XARELTO [Suspect]
     Active Substance: RIVAROXABAN
     Dosage: IN VARYING DOSES OF 15 MG, 20 MG
     Route: 048
     Dates: end: 20150205
  4. ALEVE [Suspect]
     Active Substance: NAPROXEN SODIUM
     Indication: ABDOMINAL PAIN UPPER
     Route: 065

REACTIONS (2)
  - Dysfunctional uterine bleeding [Not Recovered/Not Resolved]
  - Gastrointestinal haemorrhage [Recovering/Resolving]

NARRATIVE: CASE EVENT DATE: 20141003
